FAERS Safety Report 22090471 (Version 2)
Quarter: 2023Q4

REPORT INFORMATION
  Report Type: Report from Study
  Country: JP (occurrence: JP)
  Receive Date: 20230313
  Receipt Date: 20231121
  Transmission Date: 20240109
  Serious: Yes (Other)
  Sender: FDA-Public Use
  Company Number: JP-JAZZ PHARMACEUTICALS-2023-JP-005708

PATIENT
  Age: 5 Year
  Sex: Male
  Weight: 18.6 kg

DRUGS (1)
  1. DEFITELIO [Suspect]
     Active Substance: DEFIBROTIDE SODIUM
     Indication: Venoocclusive liver disease
     Dosage: 25 MILLIGRAM/KILOGRAM, QD
     Route: 042
     Dates: start: 20220714, end: 20220824

REACTIONS (4)
  - Splenic artery aneurysm [Recovered/Resolved]
  - Acute graft versus host disease in intestine [Recovered/Resolved]
  - Lung opacity [Recovered/Resolved]
  - Aspergillus test positive [Recovered/Resolved]

NARRATIVE: CASE EVENT DATE: 20220725
